FAERS Safety Report 7824798-5 (Version None)
Quarter: 2011Q4

REPORT INFORMATION
  Report Type: 
  Country: None (occurrence: None)
  Receive Date: 20111019
  Receipt Date: 20110126
  Transmission Date: 20120403
  Serious: No
  Sender: FDA-Public Use
  Company Number: US-BRISTOL-MYERS SQUIBB COMPANY-15512494

PATIENT
  Age: 62 Year
  Sex: Female

DRUGS (17)
  1. ZYRTEC [Concomitant]
  2. LASIX [Concomitant]
     Indication: WEIGHT DECREASED
  3. CELEBREX [Concomitant]
     Dosage: 1-2TABS
  4. ADVAIR DISKUS 100/50 [Concomitant]
     Dosage: 1DF=ADVAIR 250/50 2 PUFFS
  5. LASIX [Concomitant]
     Indication: WEIGHT INCREASED
  6. EFFEXOR XR [Concomitant]
     Dosage: GENERIC EFFEXOR XR
  7. PROAIR HFA [Concomitant]
     Dosage: 1DF=PROAIR 2 PUFFS
     Route: 055
  8. TRIAMCINOLONE ACETONIDE [Concomitant]
     Indication: PRURITUS
     Dosage: CREAM FOR BACK TRIAMCINOLONE ACETODINE CR
  9. TIZANIDINE HCL [Concomitant]
     Dosage: 2 TABS AT NIGHT
  10. SUMATRIPTAN SUCCINATE [Concomitant]
  11. ZOLPIDEM [Concomitant]
     Dosage: AT BEDTIME
  12. ONDANSETRON [Concomitant]
     Indication: NAUSEA
     Dosage: ONDANSETRON ODT 4MG
  13. HYDROXYZINE HCL [Concomitant]
     Indication: PRURITUS
     Dosage: TABS 1-2TABS
  14. LORAZEPAM [Concomitant]
     Dosage: 2 TABS
  15. ACCOLATE [Concomitant]
  16. AVALIDE [Suspect]
     Dosage: AVALIDE 150/12.5MG FOR SEVERAL YEARS
  17. OXYCODONE HCL [Concomitant]
     Dosage: UP TO 4 TABS A DAY

REACTIONS (1)
  - DRUG DOSE OMISSION [None]
